FAERS Safety Report 5351711-5 (Version None)
Quarter: 2007Q2

REPORT INFORMATION
  Report Type: 
  Country: None (occurrence: None)
  Receive Date: 20070521
  Receipt Date: 20070221
  Transmission Date: 20071010
  Serious: No
  Sender: FDA-Public Use
  Company Number: WAES 0702USA03924

PATIENT
  Age: 40 Year
  Sex: Female

DRUGS (2)
  1. JANUVIA [Suspect]
     Indication: DIABETES MELLITUS
     Dosage: UNK/UNK/PO
     Route: 048
     Dates: start: 20070207
  2. THERAPY UNSPECIFIED [Concomitant]

REACTIONS (3)
  - CHILLS [None]
  - FEELING HOT [None]
  - FLUSHING [None]
